FAERS Safety Report 5974466-X (Version None)
Quarter: 2008Q4

REPORT INFORMATION
  Report Type: 
  Country: None (occurrence: None)
  Receive Date: 20081201
  Receipt Date: 20081121
  Transmission Date: 20090506
  Serious: Yes (Other)
  Sender: FDA-Public Use
  Company Number: US-PFIZER INC-2008099350

PATIENT
  Age: 17 Year
  Sex: Female

DRUGS (4)
  1. ZOLOFT [Suspect]
     Dates: start: 20080101
  2. SEROQUEL [Concomitant]
  3. NAPROXEN [Concomitant]
  4. CONCERTA [Concomitant]

REACTIONS (1)
  - LEARNING DISABILITY [None]
